FAERS Safety Report 7751989-4 (Version None)
Quarter: 2011Q3

REPORT INFORMATION
  Report Type: 
  Country: None (occurrence: None)
  Receive Date: 20110913
  Receipt Date: 20110801
  Transmission Date: 20111222
  Serious: Yes (Hospitalization)
  Sender: FDA-Public Use
  Company Number: TR-ACCORD-010527

PATIENT
  Age: 39 Year
  Sex: Female

DRUGS (3)
  1. DOCETAXEL [Suspect]
     Indication: GASTRIC CANCER
     Dosage: 75.00-MG/M2-1.0DAYS
  2. CISPLATIN [Suspect]
     Indication: GASTRIC CANCER
     Dosage: 75.00-MG/M2-1.0DA YS
  3. FLUOROURACIL [Suspect]
     Indication: GASTRIC CANCER
     Dosage: 750.00-MG/M2

REACTIONS (5)
  - GRAND MAL CONVULSION [None]
  - BLINDNESS [None]
  - METASTASES TO MENINGES [None]
  - PAPILLOEDEMA [None]
  - CEREBRAL VENTRICLE DILATATION [None]
